FAERS Safety Report 9004603 (Version 1)
Quarter: 2013Q1

REPORT INFORMATION
  Report Type: Spontaneous
  Country: US (occurrence: US)
  Receive Date: 20130108
  Receipt Date: 20130108
  Transmission Date: 20140127
  Serious: Yes (Other)
  Sender: FDA-Public Use
  Company Number: US-ELI_LILLY_AND_COMPANY-US201301000842

PATIENT
  Sex: Male

DRUGS (5)
  1. HUMALOG 25% LISPRO, 75% NPL [Suspect]
     Indication: DIABETES MELLITUS
     Dosage: 30 U, EACH MORNING
     Dates: start: 2007
  2. HUMALOG 25% LISPRO, 75% NPL [Suspect]
     Dosage: 20 U, EACH EVENING
     Dates: start: 2007
  3. HUMALOG 25% LISPRO, 75% NPL [Suspect]
     Indication: DIABETES MELLITUS
     Dosage: 30 U, EACH MORNING
     Dates: start: 2007
  4. HUMALOG 25% LISPRO, 75% NPL [Suspect]
     Dosage: 20 U, EACH EVENING
     Dates: start: 2007
  5. PROVIGIL [Concomitant]

REACTIONS (4)
  - Road traffic accident [Recovered/Resolved with Sequelae]
  - Amnesia [Unknown]
  - Narcolepsy [Unknown]
  - Dermatitis [Unknown]
